FAERS Safety Report 8495994-1 (Version None)
Quarter: 2012Q3

REPORT INFORMATION
  Report Type: 
  Country: None (occurrence: None)
  Receive Date: 20120709
  Receipt Date: 20120703
  Transmission Date: 20120928
  Serious: No
  Sender: FDA-Public Use
  Company Number: US-PFIZER INC-2012159794

PATIENT
  Sex: Female
  Weight: 54.422 kg

DRUGS (1)
  1. DILANTIN [Suspect]
     Indication: EPILEPSY
     Dosage: 200 MG, 2X/DAY
     Route: 048

REACTIONS (2)
  - HEADACHE [None]
  - FUNCTIONAL GASTROINTESTINAL DISORDER [None]
